FAERS Safety Report 7457506-0 (Version None)
Quarter: 2011Q1

REPORT INFORMATION
  Report Type: 
  Country: None (occurrence: None)
  Receive Date: 20110302
  Receipt Date: 20100804
  Transmission Date: 20110831
  Serious: Yes (Hospitalization)
  Sender: FDA-Public Use
  Company Number: 163-21880-10010901

PATIENT
  Age: 57 Year
  Sex: Female

DRUGS (8)
  1. ALPHA LIPOIC (THIOCTIC ACID) [Concomitant]
  2. DECADRON [Concomitant]
  3. LYRICA [Concomitant]
  4. POTASSIUM (POTASSIUM) [Concomitant]
  5. ACIPHEX [Concomitant]
  6. ASPIRIN [Concomitant]
  7. REVLIMID [Suspect]
     Indication: MULTIPLE MYELOMA
     Dosage: 10 MG, X 21, PO
     Route: 048
     Dates: start: 20090801
  8. ZEMPLAR [Concomitant]

REACTIONS (4)
  - CHOLELITHIASIS [None]
  - PAIN IN EXTREMITY [None]
  - PARAESTHESIA [None]
  - HYPOAESTHESIA [None]
